FAERS Safety Report 4978126-3 (Version None)
Quarter: 2006Q2

REPORT INFORMATION
  Report Type: 
  Country: None (occurrence: None)
  Receive Date: 20060420
  Receipt Date: 20060418
  Transmission Date: 20061013
  Serious: Yes (Hospitalization)
  Sender: FDA-Public Use
  Company Number: US-SANOFI-SYNTHELABO-A03200602409

PATIENT
  Age: 53 Year
  Sex: Male

DRUGS (4)
  1. OXALIPLATIN [Suspect]
     Indication: DRUG USE FOR UNKNOWN INDICATION
     Route: 042
     Dates: start: 20060328, end: 20060328
  2. FLUOROURACIL [Suspect]
     Indication: DRUG USE FOR UNKNOWN INDICATION
     Dosage: 900 MG BOLUS FOLLOWED BY A 46-HOUR INFUSION OF 5400 MG
     Route: 042
     Dates: start: 20060328, end: 20060330
  3. LEUCOVORIN [Suspect]
     Indication: DRUG USE FOR UNKNOWN INDICATION
     Route: 042
     Dates: start: 20060328, end: 20060328
  4. KYTRIL [Concomitant]
     Route: 065

REACTIONS (3)
  - ASTHENIA [None]
  - COORDINATION ABNORMAL [None]
  - HYPOAESTHESIA [None]
